FAERS Safety Report 6124616-X (Version None)
Quarter: 2009Q1

REPORT INFORMATION
  Report Type: 
  Country: None (occurrence: None)
  Receive Date: 20090319
  Receipt Date: 20090316
  Transmission Date: 20090719
  Serious: Yes (Death, Hospitalization)
  Sender: FDA-Public Use
  Company Number: A0774112A

PATIENT
  Age: 79 Year
  Sex: Male

DRUGS (4)
  1. SERETIDE [Suspect]
     Indication: ASTHMA
     Dosage: 1PUFF PER DAY
     Route: 055
     Dates: start: 20090201, end: 20090307
  2. AMLODIPINE [Concomitant]
     Dosage: 1TAB PER DAY
     Route: 048
     Dates: start: 20010101, end: 20090307
  3. HYDROCHLOROTHIAZIDE [Concomitant]
     Dosage: 1TAB PER DAY
     Route: 048
     Dates: start: 20080701, end: 20090307
  4. NIMODIPINE [Concomitant]
     Dosage: 2TAB PER DAY
     Route: 048
     Dates: start: 20010101, end: 20090307

REACTIONS (2)
  - EMPHYSEMA [None]
  - PNEUMONIA [None]
